FAERS Safety Report 10136245 (Version 1)
Quarter: 2014Q2

REPORT INFORMATION
  Report Type: Spontaneous
  Country: FR (occurrence: FR)
  Receive Date: 20140429
  Receipt Date: 20140429
  Transmission Date: 20141212
  Serious: Yes (Hospitalization)
  Sender: FDA-Public Use
  Company Number: FR-ROCHE-1388992

PATIENT
  Age: 68 Year
  Sex: Male

DRUGS (2)
  1. APRANAX [Suspect]
     Indication: SCIATICA
     Route: 048
     Dates: start: 201402, end: 201402
  2. TRAMADOL HYDROCHLORIDE [Suspect]
     Indication: PRODUCT USED FOR UNKNOWN INDICATION
     Route: 048
     Dates: start: 201402, end: 201402

REACTIONS (4)
  - Renal failure acute [Recovered/Resolved]
  - Nephritis allergic [Recovered/Resolved]
  - Dyspnoea [Recovered/Resolved]
  - Eosinophilia [Recovered/Resolved]
